FAERS Safety Report 4470192-7 (Version None)
Quarter: 2004Q3

REPORT INFORMATION
  Report Type: 
  Country: None (occurrence: None)
  Receive Date: 20040910
  Receipt Date: 20040614
  Transmission Date: 20050211
  Serious: No
  Sender: FDA-Public Use
  Company Number: 2004-00075

PATIENT
  Age: 66 Year
  Sex: Female
  Weight: 95.7 kg

DRUGS (1)
  1. VELCADE [Suspect]
     Indication: MULTIPLE MYELOMA
     Dosage: 2.60 MG, IV BOLUS
     Route: 040
     Dates: start: 20031201

REACTIONS (2)
  - EYE DISORDER [None]
  - HERPES ZOSTER [None]
